FAERS Safety Report 8223328-6 (Version None)
Quarter: 2012Q1

REPORT INFORMATION
  Report Type: 
  Country: None (occurrence: None)
  Receive Date: 20120321
  Receipt Date: 20120309
  Transmission Date: 20120608
  Serious: Yes (Death, Hospitalization, Other)
  Sender: FDA-Public Use
  Company Number: DE-ROCHE-1041452

PATIENT
  Sex: Female
  Weight: 79 kg

DRUGS (14)
  1. LYRICA [Concomitant]
  2. PREDNISOLONE [Concomitant]
     Route: 048
     Dates: start: 20110901
  3. PANTOPRAZOLE [Concomitant]
     Route: 048
  4. METFORMIN HCL [Concomitant]
  5. FENTANYL-100 [Concomitant]
  6. PREDNISOLONE [Concomitant]
     Route: 048
     Dates: start: 20041101
  7. SPIRO COMP [Concomitant]
  8. VICTOZA [Concomitant]
     Indication: DIABETES MELLITUS
     Route: 058
     Dates: start: 20110801
  9. PREDNISOLONE [Concomitant]
     Indication: RHEUMATOID ARTHRITIS
     Route: 048
     Dates: start: 20041101
  10. DICLOFENAC SODIUM [Concomitant]
     Route: 048
     Dates: start: 20111001
  11. METOPROLOL SUCCINATE [Concomitant]
  12. CYMBALTA [Concomitant]
  13. FERROUS SULFATE TAB [Concomitant]
  14. ACTEMRA [Suspect]
     Indication: RHEUMATOID ARTHRITIS
     Dosage: 8 MG/KG
     Route: 042
     Dates: start: 20110831

REACTIONS (8)
  - INFECTIOUS PERITONITIS [None]
  - COLITIS ISCHAEMIC [None]
  - LARGE INTESTINE PERFORATION [None]
  - SEPTIC SHOCK [None]
  - INTESTINAL ISCHAEMIA [None]
  - GANGRENE [None]
  - MULTI-ORGAN FAILURE [None]
  - CARDIAC ARREST [None]
